FAERS Safety Report 9492857 (Version 1)
Quarter: 2013Q3

REPORT INFORMATION
  Report Type: Report from Study
  Country: CA (occurrence: CA)
  Receive Date: 20130831
  Receipt Date: 20130831
  Transmission Date: 20140515
  Serious: Yes (Other)
  Sender: FDA-Public Use
  Company Number: CA-UCBSA-096210

PATIENT
  Age: 70 Year
  Sex: Female
  Weight: 74.54 kg

DRUGS (17)
  1. CIMZIA [Suspect]
     Indication: RHEUMATOID ARTHRITIS
     Dosage: DOSE: ONCE IN 2 WEEKS X 3 (NUMBER OF INTAKES)
     Route: 058
     Dates: start: 20120515, end: 20120612
  2. CIMZIA [Suspect]
     Indication: RHEUMATOID ARTHRITIS
     Route: 058
     Dates: start: 20120626
  3. METHOTREXATE [Concomitant]
     Indication: RHEUMATOID ARTHRITIS
     Dosage: DOSE: 20 MG WEEKLY
     Route: 048
     Dates: start: 201102
  4. AMLODIPINE [Concomitant]
     Indication: HYPERTENSION
     Route: 048
  5. NOVO-CLONIDINE [Concomitant]
     Indication: HYPERTENSION
     Route: 048
  6. EURO-FOLIC [Concomitant]
     Dosage: DOSE: 6X/SEM (NUMBER OF INTAKES)
     Route: 048
     Dates: start: 201102
  7. CANDESARTAN [Concomitant]
     Indication: HYPERTENSION
     Route: 048
  8. PANTOPRAZOLE [Concomitant]
     Route: 048
  9. NITRO PUMP [Concomitant]
     Indication: UNEVALUABLE EVENT
     Dosage: DOSE: 0.4 MG VAPOUR AS NECESSARY
  10. ADVAIR [Concomitant]
     Indication: ASTHMA
     Dosage: DOSE: 25/125 MICRO GRAM (2 INHALATIONS)
  11. SALBUTAMOL [Concomitant]
     Indication: ASTHMA
     Dosage: DAILY DOSE: 400 MICRO GRAM (2 INHALATIONS)
  12. FUROSEMIDE [Concomitant]
     Indication: CARDIAC FAILURE
     Route: 048
  13. ZYLOPRIM [Concomitant]
     Indication: GOUT
     Route: 048
  14. BISOPROLOL [Concomitant]
     Indication: HYPERTENSION
     Route: 048
  15. SYNTHROID [Concomitant]
     Indication: HYPOTHYROIDISM
     Route: 048
  16. ATORVASTATIN [Concomitant]
     Indication: HYPERCHOLESTEROLAEMIA
     Route: 048
  17. AAS [Concomitant]
     Indication: ACQUIRED CARDIAC SEPTAL DEFECT
     Dosage: DOSE: 80 M
     Route: 048

REACTIONS (1)
  - Herpes zoster [Not Recovered/Not Resolved]
